FAERS Safety Report 7069414-8 (Version None)
Quarter: 2010Q4

REPORT INFORMATION
  Report Type: 
  Country: None (occurrence: None)
  Receive Date: 20101028
  Receipt Date: 20101025
  Transmission Date: 20110411
  Serious: Yes (Hospitalization)
  Sender: FDA-Public Use
  Company Number: FR-MERCK-1010FRA00088

PATIENT
  Age: 67 Year
  Sex: Female

DRUGS (3)
  1. PRIMAXIN [Suspect]
     Indication: PROPHYLAXIS
     Route: 042
     Dates: start: 20100916, end: 20100924
  2. POSACONAZOLE [Suspect]
     Indication: PROPHYLAXIS
     Route: 048
     Dates: start: 20100911, end: 20100924
  3. PIPERACILLIN SODIUM AND TAZOBACTAM SODIUM [Concomitant]
     Indication: PROPHYLAXIS
     Route: 051
     Dates: start: 20100910, end: 20100916

REACTIONS (1)
  - CYTOLYTIC HEPATITIS [None]
